FAERS Safety Report 26163240 (Version 1)
Quarter: 2025Q4

REPORT INFORMATION
  Report Type: Spontaneous
  Country: JP (occurrence: JP)
  Receive Date: 20251216
  Receipt Date: 20251216
  Transmission Date: 20260117
  Serious: Yes (Death, Hospitalization, Other)
  Sender: BAYER HEALTHCARE PHARMACEUTICALS INC.
  Company Number: JP-BAYER-2025A163887

PATIENT
  Age: 83 Year
  Sex: Male

DRUGS (4)
  1. NUBEQA [Suspect]
     Active Substance: DAROLUTAMIDE
     Indication: Prostate cancer metastatic
     Dosage: 1200 MG
  2. DOCETAXEL [Suspect]
     Active Substance: DOCETAXEL
     Dosage: 70 MG/M2, Q4WK
  3. DOCETAXEL [Suspect]
     Active Substance: DOCETAXEL
     Dosage: 70 MG/M2, Q4WK
  4. DOCETAXEL [Suspect]
     Active Substance: DOCETAXEL
     Dosage: 70 MG/M2, Q4WK

REACTIONS (11)
  - Disease progression [Fatal]
  - Neuroendocrine carcinoma of prostate [Fatal]
  - Metastases to liver [Fatal]
  - Neutrophil count decreased [None]
  - Malaise [None]
  - Decreased appetite [None]
  - Malaise [None]
  - Malaise [None]
  - Malaise [None]
  - Decreased appetite [None]
  - Fatigue [None]
